FAERS Safety Report 5875132-1 (Version None)
Quarter: 2008Q3

REPORT INFORMATION
  Report Type: 
  Country: None (occurrence: None)
  Receive Date: 20080909
  Receipt Date: 20080902
  Transmission Date: 20090109
  Serious: Yes (Hospitalization)
  Sender: FDA-Public Use
  Company Number: B0535322A

PATIENT
  Age: 52 Year

DRUGS (5)
  1. AVANDAMET [Suspect]
     Route: 048
     Dates: end: 20080819
  2. BENDROFLUMETHIAZIDE [Concomitant]
     Indication: HYPERTENSION
     Route: 048
  3. RAMIPRIL [Concomitant]
     Indication: HYPERTENSION
     Route: 048
  4. SIMVASTATIN [Concomitant]
     Route: 048
  5. NITROFURANTOIN [Concomitant]
     Route: 048

REACTIONS (3)
  - CARDIAC FAILURE CHRONIC [None]
  - DYSPNOEA [None]
  - PULMONARY OEDEMA [None]
